FAERS Safety Report 4439497-X (Version None)
Quarter: 2004Q3

REPORT INFORMATION
  Report Type: 
  Country: None (occurrence: None)
  Receive Date: 20040901
  Receipt Date: 20040901
  Transmission Date: 20050211
  Serious: Yes (Hospitalization)
  Sender: FDA-Public Use
  Company Number: None

PATIENT
  Sex: Female
  Weight: 61.2356 kg

DRUGS (3)
  1. ADVIL [Suspect]
     Indication: HEADACHE
     Dosage: PO [PRIOR TO ADMISSION]
     Route: 048
  2. LEVOXYL [Concomitant]
  3. CLARITIN-D [Concomitant]

REACTIONS (1)
  - SWELLING FACE [None]
